FAERS Safety Report 19151090 (Version 1)
Quarter: 2021Q2

REPORT INFORMATION
  Report Type: Spontaneous
  Country: FR (occurrence: FR)
  Receive Date: 20210419
  Receipt Date: 20210419
  Transmission Date: 20210717
  Serious: Yes (Death, Hospitalization)
  Sender: FDA-Public Use
  Company Number: FR-TEVA-2021-FR-1901729

PATIENT
  Age: 14 Year
  Sex: Female
  Weight: 82 kg

DRUGS (20)
  1. ATROPINE. [Concomitant]
     Active Substance: ATROPINE
  2. EMLA [Concomitant]
     Active Substance: LIDOCAINE\PRILOCAINE
     Route: 046
  3. VANCOMYCINE [Concomitant]
     Active Substance: VANCOMYCIN
  4. SEVOFLURANE. [Suspect]
     Active Substance: SEVOFLURANE
     Indication: GENERAL ANAESTHESIA
     Dosage: DOSAGE NOT KNOWN
     Route: 055
     Dates: start: 20200924, end: 20200924
  5. FOSFOMYCINE [Concomitant]
     Active Substance: FOSFOMYCIN
  6. CLAFORAN [Concomitant]
     Active Substance: CEFOTAXIME SODIUM
  7. NUBAIN [Concomitant]
     Active Substance: NALBUPHINE HYDROCHLORIDE
  8. MEROPENEM ANHYDRE [Suspect]
     Active Substance: MEROPENEM
     Indication: SEPSIS
     Dosage: SEE COMMENT
     Route: 042
     Dates: start: 20200919, end: 20200923
  9. ORBENINE [Suspect]
     Active Substance: CLOXACILLIN SODIUM
     Indication: SEPSIS
     Dosage: SEE COMMENT
     Route: 042
  10. HYDROCORTISONE. [Concomitant]
     Active Substance: HYDROCORTISONE
  11. PREDNISOLONE. [Concomitant]
     Active Substance: PREDNISOLONE
  12. LOVENOX [Concomitant]
     Active Substance: ENOXAPARIN SODIUM
     Route: 058
  13. LINEZOLIDE [Suspect]
     Active Substance: LINEZOLID
     Indication: SEPSIS
     Dosage: SEE COMMENT
     Route: 042
     Dates: start: 20200919, end: 20200923
  14. SUFENTANIL [Suspect]
     Active Substance: SUFENTANIL
     Indication: GENERAL ANAESTHESIA
     Dosage: DOSAGE NOT KNOWN
     Route: 042
     Dates: start: 20200924, end: 20200924
  15. PROPOFOL. [Suspect]
     Active Substance: PROPOFOL
     Indication: GENERAL ANAESTHESIA
     Dosage: DOSAGE NOT KNOWN
     Route: 042
     Dates: start: 20200924, end: 20200924
  16. CELOCURINE [Concomitant]
     Active Substance: SUCCINYLCHOLINE
  17. ZOPHREN [Suspect]
     Active Substance: ONDANSETRON
     Indication: VOMITING
     Dosage: 4 MG
     Route: 042
     Dates: start: 20200924, end: 20200924
  18. MIDAZOLAM. [Suspect]
     Active Substance: MIDAZOLAM
     Indication: GENERALISED TONIC-CLONIC SEIZURE
     Dosage: 5 MG
     Route: 042
     Dates: start: 20200924, end: 20200924
  19. FLUDROCORTISONE [Concomitant]
     Active Substance: FLUDROCORTISONE
  20. EPHEDRINE. [Concomitant]
     Active Substance: EPHEDRINE

REACTIONS (2)
  - Cardio-respiratory arrest [Fatal]
  - Generalised tonic-clonic seizure [Fatal]

NARRATIVE: CASE EVENT DATE: 20200924
